FAERS Safety Report 12053720 (Version 1)
Quarter: 2016Q1

REPORT INFORMATION
  Report Type: Report from Study
  Country: CA (occurrence: CA)
  Receive Date: 20160209
  Receipt Date: 20160209
  Transmission Date: 20160526
  Serious: Yes (Other)
  Sender: FDA-Public Use
  Company Number: CA-ASTRAZENECA-2014SE81512

PATIENT
  Age: 751 Month
  Sex: Male

DRUGS (14)
  1. CAPRELSA [Suspect]
     Active Substance: VANDETANIB
     Indication: MEDULLARY THYROID CANCER
     Route: 048
     Dates: start: 20140930, end: 20160115
  2. VITAMIN D [Concomitant]
     Active Substance: CHOLECALCIFEROL
  3. TYLENOL [Concomitant]
     Active Substance: ACETAMINOPHEN
     Indication: PAIN
     Dosage: PRN
  4. CAPRELSA [Suspect]
     Active Substance: VANDETANIB
     Indication: MEDULLARY THYROID CANCER
     Route: 048
     Dates: start: 20151024
  5. SYNTHROID [Concomitant]
     Active Substance: LEVOTHYROXINE SODIUM
  6. ALEVE [Concomitant]
     Active Substance: NAPROXEN SODIUM
     Indication: PAIN
     Dosage: PRN
  7. FISH OIL [Concomitant]
     Active Substance: FISH OIL
     Indication: SUPPLEMENTATION THERAPY
  8. CAPRELSA [Suspect]
     Active Substance: VANDETANIB
     Indication: MEDULLARY THYROID CANCER
     Route: 048
  9. SYNTHROID [Concomitant]
     Active Substance: LEVOTHYROXINE SODIUM
  10. CAPRELSA [Suspect]
     Active Substance: VANDETANIB
     Indication: MEDULLARY THYROID CANCER
     Route: 048
     Dates: start: 20140930, end: 20150918
  11. MELATONIN [Concomitant]
     Active Substance: MELATONIN
  12. POTASSIUM [Concomitant]
     Active Substance: POTASSIUM
  13. K-LYTE [Concomitant]
  14. CALCIUM CARBONATE. [Concomitant]
     Active Substance: CALCIUM CARBONATE

REACTIONS (7)
  - Blood calcitonin increased [Unknown]
  - Blood thyroid stimulating hormone increased [Unknown]
  - Electrocardiogram QT prolonged [Recovered/Resolved]
  - Rhinorrhoea [Recovered/Resolved]
  - Diarrhoea [Recovered/Resolved]
  - Malignant neoplasm progression [Not Recovered/Not Resolved]
  - Pyrexia [Recovered/Resolved]

NARRATIVE: CASE EVENT DATE: 201410
